FAERS Safety Report 7104072-5 (Version None)
Quarter: 2010Q4

REPORT INFORMATION
  Report Type: 
  Country: None (occurrence: None)
  Receive Date: 20101115
  Receipt Date: 20100519
  Transmission Date: 20110411
  Serious: No
  Sender: FDA-Public Use
  Company Number: US-ALLERGAN-1006620US

PATIENT
  Sex: Female

DRUGS (1)
  1. BOTOX COSMETIC [Suspect]
     Indication: SKIN WRINKLING
     Dosage: 48 UNITS, SINGLE

REACTIONS (4)
  - INJECTION SITE SWELLING [None]
  - INJECTION SITE URTICARIA [None]
  - MUSCULOSKELETAL PAIN [None]
  - PYREXIA [None]
